FAERS Safety Report 6641441-1 (Version None)
Quarter: 2010Q1

REPORT INFORMATION
  Report Type: 
  Country: None (occurrence: None)
  Receive Date: 20100318
  Receipt Date: 20100311
  Transmission Date: 20100710
  Serious: Yes (Hospitalization)
  Sender: FDA-Public Use
  Company Number: US-ROCHE-691420

PATIENT
  Sex: Female
  Weight: 40.8 kg

DRUGS (14)
  1. PEG-INTERFERON ALFA 2A (RO 25-8310) [Suspect]
     Indication: HEPATITIS C
     Dosage: INTERRUPTION
     Route: 065
  2. PEG-INTERFERON ALFA 2A (RO 25-8310) [Suspect]
     Route: 065
  3. BI 201335 [Suspect]
     Indication: HEPATITIS C
     Route: 048
     Dates: start: 20091123, end: 20100210
  4. NEURONTIN [Concomitant]
     Route: 048
     Dates: start: 20090101
  5. LORTAB [Concomitant]
     Route: 048
     Dates: start: 20020101
  6. XANAX [Concomitant]
     Indication: ANXIETY
     Dosage: OTHER INDICATION: DEPRESSION
     Route: 048
     Dates: start: 19900101
  7. PERCOCET [Concomitant]
     Dosage: AS NECESSARY
     Dates: start: 20081201
  8. TRAMADOL HCL [Concomitant]
     Route: 048
     Dates: start: 20090101
  9. CALCIUM/VITAMIN D [Concomitant]
     Route: 048
     Dates: start: 20090301
  10. ACTONEL [Concomitant]
     Indication: OSTEOPOROSIS
     Route: 048
     Dates: start: 20090501
  11. LOMOTIL [Concomitant]
     Route: 048
     Dates: start: 20071101
  12. ZESTORETIC [Concomitant]
     Indication: HYPERTENSION
     Route: 048
     Dates: start: 20090101, end: 20090223
  13. PHENERGAN HCL [Concomitant]
     Indication: NAUSEA
     Dosage: AS NECESSARY
     Route: 048
     Dates: start: 20100115
  14. CELEXA [Concomitant]
     Indication: ANXIETY
     Dosage: OTHER INDICATION: DEPRESSION
     Route: 048
     Dates: start: 20081201

REACTIONS (3)
  - HYPOTENSION [None]
  - INTERSTITIAL LUNG DISEASE [None]
  - RENAL FAILURE [None]
